FAERS Safety Report 10270289 (Version 1)
Quarter: 2014Q2

REPORT INFORMATION
  Report Type: Spontaneous
  Country: US (occurrence: None)
  Receive Date: 20140627
  Receipt Date: 20140627
  Transmission Date: 20141212
  Serious: Yes (Hospitalization)
  Sender: FDA-Public Use
  Company Number: None

PATIENT
  Sex: Male

DRUGS (2)
  1. DEPAKENE 250 MG/ 5ML SYRUP [Suspect]
     Indication: PARTIAL SEIZURES
     Route: 048
  2. KEPPRA [Suspect]
     Indication: PARTIAL SEIZURES
     Route: 048

REACTIONS (4)
  - Convulsion [None]
  - Condition aggravated [None]
  - Product substitution issue [None]
  - Therapeutic response changed [None]
